FAERS Safety Report 9385522 (Version 2)
Quarter: 2013Q4

REPORT INFORMATION
  Report Type: Spontaneous
  Country: US (occurrence: US)
  Receive Date: 20130705
  Receipt Date: 20131004
  Transmission Date: 20140711
  Serious: No
  Sender: FDA-Public Use
  Company Number: US-BAYER-2013-080224

PATIENT
  Age: 23 Year
  Sex: Female
  Weight: 68.93 kg

DRUGS (5)
  1. MIRENA [Suspect]
     Indication: MENORRHAGIA
     Dosage: 20 MCG/24HR, CONT
     Route: 015
     Dates: start: 201204
  2. SUMATRIPTAN [Concomitant]
     Indication: MIGRAINE
     Dosage: UNK UNK, PRN
     Dates: start: 201306
  3. VENTOLIN [SALBUTAMOL] [Concomitant]
     Indication: ASTHMA
     Dosage: 1 PUFF EVERY 4HRS AS NEEDED FOR DYSPNEA
  4. FLOVENT [Concomitant]
     Indication: ASTHMA
     Dosage: 2 PUFF(S), UNK
     Dates: start: 201211
  5. NASONEX [Concomitant]
     Indication: RHINITIS ALLERGIC
     Dosage: 2 SPRAYS IN EACH NOSTRIL ONCE DAILY
     Route: 045
     Dates: start: 201210

REACTIONS (5)
  - Menorrhagia [Not Recovered/Not Resolved]
  - Abdominal pain lower [Not Recovered/Not Resolved]
  - Migraine [Not Recovered/Not Resolved]
  - Device issue [None]
  - Drug ineffective [None]
